FAERS Safety Report 9358779 (Version 1)
Quarter: 2013Q2

REPORT INFORMATION
  Report Type: Spontaneous
  Country: KR (occurrence: KR)
  Receive Date: 20130620
  Receipt Date: 20130620
  Transmission Date: 20140414
  Serious: Yes (Disabling)
  Sender: FDA-Public Use
  Company Number: KR-NAPPMUNDI-GBR-2013-0014679

PATIENT
  Sex: Female

DRUGS (1)
  1. NORSPAN 5 UG/H [Suspect]
     Indication: PRODUCT USED FOR UNKNOWN INDICATION
     Dosage: 5 MCG, Q1H
     Route: 062

REACTIONS (3)
  - Activities of daily living impaired [Unknown]
  - Nausea [Unknown]
  - Vomiting [Unknown]
